FAERS Safety Report 5671421-4 (Version None)
Quarter: 2008Q1

REPORT INFORMATION
  Report Type: 
  Country: None (occurrence: None)
  Receive Date: 20080318
  Receipt Date: 20080306
  Transmission Date: 20080703
  Serious: Yes (Death, Other)
  Sender: FDA-Public Use
  Company Number: CO-PFIZER INC-2008022390

PATIENT
  Sex: Female

DRUGS (1)
  1. SUTENT [Suspect]
     Route: 048
     Dates: start: 20080104, end: 20080302

REACTIONS (2)
  - DEATH [None]
  - PLATELET COUNT DECREASED [None]
